FAERS Safety Report 17531294 (Version 1)
Quarter: 2020Q1

REPORT INFORMATION
  Report Type: Report from Study
  Country: CO (occurrence: CO)
  Receive Date: 20200312
  Receipt Date: 20200312
  Transmission Date: 20200409
  Serious: Yes (Other)
  Sender: FDA-Public Use
  Company Number: CO-ROCHE-2457536

PATIENT
  Sex: Female

DRUGS (2)
  1. XELODA [Suspect]
     Active Substance: CAPECITABINE
     Indication: PRODUCT USED FOR UNKNOWN INDICATION
     Dosage: PILL
     Route: 048
  2. HERCEPTIN [Suspect]
     Active Substance: TRASTUZUMAB
     Indication: PRODUCT USED FOR UNKNOWN INDICATION
     Route: 065

REACTIONS (10)
  - Cardiac dysfunction [Unknown]
  - Asthma [Unknown]
  - Spinal pain [Unknown]
  - Blood pressure increased [Unknown]
  - Chest pain [Unknown]
  - Angina unstable [Unknown]
  - Pain [Unknown]
  - Tachycardia [Unknown]
  - Hypersensitivity [Unknown]
  - Nausea [Unknown]
